FAERS Safety Report 7434431-2 (Version None)
Quarter: 2011Q2

REPORT INFORMATION
  Report Type: 
  Country: None (occurrence: None)
  Receive Date: 20110425
  Receipt Date: 20110414
  Transmission Date: 20111010
  Serious: Yes (Hospitalization, Other)
  Sender: FDA-Public Use
  Company Number: US-JNJFOC-20110406292

PATIENT
  Sex: Female

DRUGS (10)
  1. DALFAMPRIDINE [Suspect]
     Indication: PRODUCT USED FOR UNKNOWN INDICATION
     Route: 048
  2. VITAMIN D [Concomitant]
     Route: 065
  3. FLUOXETINE [Concomitant]
     Route: 065
  4. MULTI-VITAMINS [Concomitant]
     Route: 065
  5. VESICARE [Concomitant]
     Route: 065
  6. ASCORBIC ACID [Concomitant]
     Route: 065
  7. TYSABRI [Concomitant]
     Route: 065
  8. CALCIUM [Concomitant]
     Route: 065
  9. TRAMADOL HCL [Suspect]
     Indication: PRODUCT USED FOR UNKNOWN INDICATION
     Route: 065
  10. ADVIL LIQUI-GELS [Concomitant]
     Route: 065

REACTIONS (9)
  - INCOHERENT [None]
  - HEMIPARESIS [None]
  - DEPRESSION [None]
  - CONVULSION [None]
  - GAIT DISTURBANCE [None]
  - VIITH NERVE PARALYSIS [None]
  - BEDRIDDEN [None]
  - HEADACHE [None]
  - WHITE BLOOD CELL COUNT INCREASED [None]
